FAERS Safety Report 24885437 (Version 1)
Quarter: 2025Q1

REPORT INFORMATION
  Report Type: Spontaneous
  Country: US (occurrence: US)
  Receive Date: 20250124
  Receipt Date: 20250124
  Transmission Date: 20250409
  Serious: Yes (Hospitalization)
  Sender: NEUROCRINE BIOSCIENCES
  Company Number: US-NEUROCRINE BIOSCIENCES INC.-2025NBI00483

PATIENT
  Age: 3 Decade
  Sex: Female

DRUGS (1)
  1. INGREZZA [Suspect]
     Active Substance: VALBENAZINE
     Indication: Tardive dyskinesia
     Route: 065

REACTIONS (4)
  - Myocardial infarction [Recovering/Resolving]
  - Tardive dyskinesia [Unknown]
  - Tremor [Recovering/Resolving]
  - Drooling [Unknown]
